FAERS Safety Report 20003929 (Version 2)
Quarter: 2021Q4

REPORT INFORMATION
  Report Type: Spontaneous
  Country: CA (occurrence: CA)
  Receive Date: 20211027
  Receipt Date: 20211103
  Transmission Date: 20220303
  Serious: Yes (Life-Threatening, Hospitalization, Other)
  Sender: FDA-Public Use
  Company Number: CA-TEVA-2021-CA-1969733

PATIENT
  Age: 47 Year
  Sex: Female

DRUGS (52)
  1. CYCLOBENZAPRINE [Interacting]
     Active Substance: CYCLOBENZAPRINE
     Indication: Scoliosis
     Dosage: 20 MILLIGRAM DAILY;
     Route: 048
  2. CYCLOBENZAPRINE [Interacting]
     Active Substance: CYCLOBENZAPRINE
     Indication: Pain
     Dosage: 30 MILLIGRAM DAILY;
     Route: 048
  3. CYCLOBENZAPRINE [Interacting]
     Active Substance: CYCLOBENZAPRINE
     Route: 048
  4. GABAPENTIN [Interacting]
     Active Substance: GABAPENTIN
     Indication: Scoliosis
     Dosage: 1600 MILLIGRAM DAILY;
     Route: 065
  5. GABAPENTIN [Interacting]
     Active Substance: GABAPENTIN
     Indication: Pain
     Dosage: 1800 MILLIGRAM DAILY;
     Route: 048
  6. FLUOXETINE [Interacting]
     Active Substance: FLUOXETINE HYDROCHLORIDE
     Indication: Major depression
     Route: 048
  7. FLUOXETINE [Interacting]
     Active Substance: FLUOXETINE HYDROCHLORIDE
     Route: 048
  8. FLUOXETINE [Interacting]
     Active Substance: FLUOXETINE HYDROCHLORIDE
     Route: 048
  9. FLUOXETINE [Interacting]
     Active Substance: FLUOXETINE HYDROCHLORIDE
     Dosage: 80 MILLIGRAM DAILY;
     Route: 048
  10. FLUOXETINE [Interacting]
     Active Substance: FLUOXETINE HYDROCHLORIDE
     Dosage: 20 MILLIGRAM DAILY;
     Route: 048
  11. RISPERIDONE [Interacting]
     Active Substance: RISPERIDONE
     Indication: Affective disorder
     Dosage: 1 MILLIGRAM DAILY;
     Route: 048
  12. RISPERIDONE [Interacting]
     Active Substance: RISPERIDONE
     Dosage: .25 MILLIGRAM DAILY;
     Route: 048
  13. LORAZEPAM [Interacting]
     Active Substance: LORAZEPAM
     Indication: Withdrawal syndrome
     Route: 048
  14. LORAZEPAM [Interacting]
     Active Substance: LORAZEPAM
     Indication: Anxiety
     Dosage: 8 MILLIGRAM DAILY;
     Route: 048
  15. LORAZEPAM [Interacting]
     Active Substance: LORAZEPAM
     Indication: Drug withdrawal maintenance therapy
     Route: 048
  16. LORAZEPAM [Interacting]
     Active Substance: LORAZEPAM
     Route: 065
  17. LORAZEPAM [Interacting]
     Active Substance: LORAZEPAM
     Route: 065
  18. LORAZEPAM [Interacting]
     Active Substance: LORAZEPAM
     Route: 065
  19. LORAZEPAM [Interacting]
     Active Substance: LORAZEPAM
     Route: 065
  20. LORAZEPAM [Interacting]
     Active Substance: LORAZEPAM
     Route: 065
  21. LORAZEPAM [Interacting]
     Active Substance: LORAZEPAM
     Route: 030
  22. LORAZEPAM [Interacting]
     Active Substance: LORAZEPAM
     Route: 065
  23. LORAZEPAM [Interacting]
     Active Substance: LORAZEPAM
     Route: 065
  24. QUETIAPINE [Interacting]
     Active Substance: QUETIAPINE
     Indication: Major depression
     Route: 048
  25. QUETIAPINE [Interacting]
     Active Substance: QUETIAPINE
     Dosage: 200 MILLIGRAM DAILY;
     Route: 065
  26. QUETIAPINE [Interacting]
     Active Substance: QUETIAPINE
     Dosage: 100 MILLIGRAM DAILY;
     Route: 048
  27. METHADONE [Interacting]
     Active Substance: METHADONE HYDROCHLORIDE
     Indication: Drug use disorder
     Dosage: 75 MILLIGRAM DAILY;
     Route: 048
  28. METHADONE [Interacting]
     Active Substance: METHADONE HYDROCHLORIDE
     Route: 065
  29. METHADONE [Interacting]
     Active Substance: METHADONE HYDROCHLORIDE
     Route: 065
  30. METHADONE [Interacting]
     Active Substance: METHADONE HYDROCHLORIDE
     Dosage: 60 MILLIGRAM DAILY;
     Route: 048
  31. METHADONE [Interacting]
     Active Substance: METHADONE HYDROCHLORIDE
     Route: 065
  32. DOXEPIN [Interacting]
     Active Substance: DOXEPIN
     Indication: Major depression
     Dosage: 50 MILLIGRAM DAILY;
     Route: 048
  33. DOXEPIN [Interacting]
     Active Substance: DOXEPIN
     Route: 048
  34. DOXEPIN [Interacting]
     Active Substance: DOXEPIN
     Route: 048
  35. DOXEPIN [Interacting]
     Active Substance: DOXEPIN
     Dosage: 150 MILLIGRAM DAILY;
     Route: 048
  36. DIVALPROEX SODIUM [Interacting]
     Active Substance: DIVALPROEX SODIUM
     Indication: Mania
     Route: 048
  37. DIVALPROEX SODIUM [Interacting]
     Active Substance: DIVALPROEX SODIUM
     Indication: Affective disorder
     Route: 048
  38. DIVALPROEX SODIUM [Interacting]
     Active Substance: DIVALPROEX SODIUM
     Route: 048
  39. DIVALPROEX SODIUM [Interacting]
     Active Substance: DIVALPROEX SODIUM
     Route: 048
  40. TIOTROPIUM [Concomitant]
     Active Substance: TIOTROPIUM
  41. ALBUTEROL [Concomitant]
     Active Substance: ALBUTEROL
  42. SPIRIVA [Concomitant]
     Active Substance: TIOTROPIUM BROMIDE MONOHYDRATE
     Route: 065
  43. NAPROXEN [Concomitant]
     Active Substance: NAPROXEN
  44. NALOXONE [Concomitant]
     Active Substance: NALOXONE
  45. FUROSEMIDE [Concomitant]
     Active Substance: FUROSEMIDE
     Route: 065
  46. ESTRADIOL [Concomitant]
     Active Substance: ESTRADIOL
  47. CLONIDINE [Concomitant]
     Active Substance: CLONIDINE
  48. ATENOL (PREMPHARM) [Concomitant]
  49. DOXEPIN [Concomitant]
     Active Substance: DOXEPIN
  50. FLUOXETINE [Concomitant]
     Active Substance: FLUOXETINE HYDROCHLORIDE
  51. QUETIAPINE [Concomitant]
     Active Substance: QUETIAPINE
  52. RISPERIDONE [Concomitant]
     Active Substance: RISPERIDONE

REACTIONS (6)
  - Depressed level of consciousness [Unknown]
  - Drug interaction [Unknown]
  - Respiratory depression [Unknown]
  - Toxicity to various agents [Unknown]
  - Off label use [Unknown]
  - Potentiating drug interaction [Unknown]
